FAERS Safety Report 22063857 (Version 8)
Quarter: 2025Q1

REPORT INFORMATION
  Report Type: Report from Study
  Country: CA (occurrence: CA)
  Receive Date: 20230306
  Receipt Date: 20250225
  Transmission Date: 20250408
  Serious: Yes (Other)
  Sender: ROCHE
  Company Number: CA-ROCHE-3297017

PATIENT
  Age: 37 Year
  Sex: Male

DRUGS (2)
  1. OCREVUS [Suspect]
     Active Substance: OCRELIZUMAB
     Indication: Relapsing-remitting multiple sclerosis
     Dosage: 300 MG AT DAY 0 AND 14, THEN 600 MG EVERY 6 MONTH?LAST DOSE: 21/MAR/2024
     Route: 042
     Dates: start: 20200806
  2. BILASTINE [Concomitant]
     Active Substance: BILASTINE

REACTIONS (7)
  - Drug ineffective [Unknown]
  - Diverticulitis [Recovered/Resolved]
  - Skin abrasion [Recovering/Resolving]
  - Skin laceration [Recovering/Resolving]
  - Clumsiness [Not Recovered/Not Resolved]
  - Multiple sclerosis [Unknown]
  - Eye infection [Unknown]

NARRATIVE: CASE EVENT DATE: 20230212
